FAERS Safety Report 10457161 (Version 1)
Quarter: 2014Q3

REPORT INFORMATION
  Report Type: Spontaneous
  Country: US (occurrence: None)
  Receive Date: 20140915
  Receipt Date: 20140915
  Transmission Date: 20150326
  Serious: Yes (Disabling)
  Sender: FDA-Public Use
  Company Number: None

PATIENT
  Age: 42 Year
  Sex: Female
  Weight: 58.97 kg

DRUGS (1)
  1. LEVAQUIN [Suspect]
     Active Substance: LEVOFLOXACIN
     Indication: INFECTION
     Dosage: ONE PILL ONCE DAILY TAKEN BY MOUTH
     Route: 048
     Dates: start: 20140826, end: 20140827

REACTIONS (8)
  - Pain [None]
  - Headache [None]
  - Rash [None]
  - Visual impairment [None]
  - Scar [None]
  - Skin disorder [None]
  - Rash pruritic [None]
  - Tendon pain [None]

NARRATIVE: CASE EVENT DATE: 20140826
